FAERS Safety Report 9460498 (Version 1)
Quarter: 2013Q3

REPORT INFORMATION
  Report Type: Spontaneous
  Country: TR (occurrence: TR)
  Receive Date: 20130815
  Receipt Date: 20130815
  Transmission Date: 20140515
  Serious: Yes (Hospitalization, Other)
  Sender: FDA-Public Use
  Company Number: TR-WATSON-2013-14301

PATIENT
  Age: 15 Year
  Sex: Male

DRUGS (1)
  1. PROPRANOLOL [Suspect]
     Indication: PRODUCT USED FOR UNKNOWN INDICATION
     Dosage: 11 MG/KG, UNKNOWN
     Route: 065

REACTIONS (4)
  - Wolff-Parkinson-White syndrome [Unknown]
  - Bradycardia [Unknown]
  - Tremor [Unknown]
  - Overdose [Recovered/Resolved]
